FAERS Safety Report 25632317 (Version 1)
Quarter: 2025Q3

REPORT INFORMATION
  Report Type: Spontaneous
  Country: EU (occurrence: EU)
  Receive Date: 20250801
  Receipt Date: 20250801
  Transmission Date: 20251020
  Serious: Yes (Life-Threatening, Hospitalization, Other)
  Sender: PHARMOBEDIENT CONSULTING, LLC
  Company Number: EU-Pharmobedient-000030

PATIENT
  Age: 5 Year
  Sex: Male

DRUGS (2)
  1. BUSULFAN [Suspect]
     Active Substance: BUSULFAN
     Indication: Neuroblastoma
  2. MELPHALAN [Concomitant]
     Active Substance: MELPHALAN
     Indication: Neuroblastoma

REACTIONS (2)
  - Pulmonary arterial hypertension [Recovered/Resolved]
  - Right ventricular failure [Recovered/Resolved]
